FAERS Safety Report 6434956-2 (Version None)
Quarter: 2009Q4

REPORT INFORMATION
  Report Type: 
  Country: None (occurrence: None)
  Receive Date: 20091110
  Receipt Date: 20091029
  Transmission Date: 20100525
  Serious: Yes (Hospitalization, Other)
  Sender: FDA-Public Use
  Company Number: FR-GILEAD-2009-0024787

PATIENT
  Age: 38 Year
  Sex: Female

DRUGS (12)
  1. TRUVADA [Suspect]
     Indication: HIV INFECTION
     Dates: start: 20090814, end: 20090903
  2. AMBISOME [Suspect]
     Indication: CRYPTOCOCCOSIS
  3. FUNGIZONE [Suspect]
     Indication: CRYPTOCOCCOSIS
     Dates: start: 20090728, end: 20090803
  4. KALETRA [Concomitant]
     Indication: HIV INFECTION
  5. NORVIR [Concomitant]
  6. TRIFLUCAN [Concomitant]
  7. BACTRIM DS [Concomitant]
  8. AZADOSE [Concomitant]
  9. FOLINORAL [Concomitant]
  10. CALCIDOSE [Concomitant]
  11. OFLOCET [Concomitant]
  12. ROCEPHIN [Concomitant]

REACTIONS (4)
  - ANAEMIA [None]
  - PRURITUS [None]
  - RENAL FAILURE [None]
  - THROMBOCYTOPENIA [None]
